FAERS Safety Report 18151700 (Version 4)
Quarter: 2021Q3

REPORT INFORMATION
  Report Type: Spontaneous
  Country: US (occurrence: US)
  Receive Date: 20200814
  Receipt Date: 20210811
  Transmission Date: 20211014
  Serious: Yes (Other)
  Sender: FDA-Public Use
  Company Number: US-PFIZER INC-2020313358

PATIENT
  Age: 73 Year
  Sex: Female

DRUGS (1)
  1. XELJANZ XR [Suspect]
     Active Substance: TOFACITINIB CITRATE
     Indication: RHEUMATOID ARTHRITIS
     Dosage: 11 MG, DAILY
     Route: 048
     Dates: start: 20200708

REACTIONS (4)
  - Therapeutic product effect incomplete [Unknown]
  - Depressed mood [Unknown]
  - Pulmonary oedema [Recovering/Resolving]
  - Peripheral swelling [Not Recovered/Not Resolved]

NARRATIVE: CASE EVENT DATE: 2020
